FAERS Safety Report 8317661-7 (Version None)
Quarter: 2012Q2

REPORT INFORMATION
  Report Type: 
  Country: None (occurrence: None)
  Receive Date: 20120427
  Receipt Date: 20120426
  Transmission Date: 20120825
  Serious: Yes (Hospitalization)
  Sender: FDA-Public Use
  Company Number: IT-BRISTOL-MYERS SQUIBB COMPANY-16524845

PATIENT
  Age: 70 Year
  Sex: Female

DRUGS (4)
  1. FLECAINIDE ACETATE [Concomitant]
     Route: 048
  2. BISOPROLOL FUMARATE [Concomitant]
     Route: 048
  3. SIMVASTATIN [Concomitant]
     Route: 048
  4. COUMADIN [Suspect]
     Indication: ATRIAL FIBRILLATION
     Dosage: INTER ON 01FEB12,RESTARTED ON 09FEB12
     Route: 048
     Dates: start: 20110101

REACTIONS (2)
  - GASTRIC ULCER HAEMORRHAGE [None]
  - ANAEMIA [None]
